FAERS Safety Report 12411304 (Version 2)
Quarter: 2016Q2

REPORT INFORMATION
  Report Type: Report from Study
  Country: JP (occurrence: JP)
  Receive Date: 20160527
  Receipt Date: 20160607
  Transmission Date: 20160815
  Serious: Yes (Other)
  Sender: FDA-Public Use
  Company Number: JP-INCYTE CORPORATION-2016IN003100

PATIENT
  Age: 80 Year
  Sex: Male

DRUGS (7)
  1. JAKAFI [Suspect]
     Active Substance: RUXOLITINIB
     Dosage: 5 MG, BID
     Route: 048
  2. JAKAFI [Suspect]
     Active Substance: RUXOLITINIB
     Indication: MYELOFIBROSIS
     Dosage: 2.5 MG, BID
     Route: 048
     Dates: start: 201502
  3. JAKAFI [Suspect]
     Active Substance: RUXOLITINIB
     Dosage: 7.5 MG, BID
     Route: 048
     Dates: start: 201506
  4. HYDREA [Concomitant]
     Active Substance: HYDROXYUREA
     Indication: PRODUCT USED FOR UNKNOWN INDICATION
     Dosage: UNKNOWN
     Route: 065
  5. HYDREA [Concomitant]
     Active Substance: HYDROXYUREA
     Dosage: 500 MG, EVERY OTHER DAY
  6. JAKAFI [Suspect]
     Active Substance: RUXOLITINIB
     Dosage: 10 MG, BID
     Route: 048
     Dates: start: 201601
  7. HYDREA [Concomitant]
     Active Substance: HYDROXYUREA
     Dosage: 500 MG, QOD
     Route: 065

REACTIONS (2)
  - Gastric varices haemorrhage [Unknown]
  - Oesophageal varices haemorrhage [Unknown]

NARRATIVE: CASE EVENT DATE: 20160417
